FAERS Safety Report 10230977 (Version 1)
Quarter: 2014Q2

REPORT INFORMATION
  Report Type: Spontaneous
  Country: US (occurrence: None)
  Receive Date: 20140610
  Receipt Date: 20140610
  Transmission Date: 20141212
  Serious: Yes (Hospitalization)
  Sender: FDA-Public Use
  Company Number: None

PATIENT
  Age: 60 Year
  Sex: Female
  Weight: 87.2 kg

DRUGS (3)
  1. LENALIDOMIDE [Suspect]
     Dosage: PATIENT COMPLETED THIS CYCLE
     Dates: end: 20140602
  2. VELCADE [Suspect]
     Dosage: PATIENT COMPLETED CYCLE 3
     Dates: end: 20140530
  3. DEXAMETHASONE [Suspect]
     Dosage: PATIENT COMPLETED CYCLE 3
     Dates: end: 20140531

REACTIONS (6)
  - Dyspnoea [None]
  - Fatigue [None]
  - Headache [None]
  - Pleural effusion [None]
  - Mass [None]
  - Lung infiltration [None]
